FAERS Safety Report 23712147 (Version 1)
Quarter: 2024Q2

REPORT INFORMATION
  Report Type: Spontaneous
  Country: IT (occurrence: IT)
  Receive Date: 20240405
  Receipt Date: 20240405
  Transmission Date: 20240715
  Serious: Yes (Death, Other)
  Sender: FDA-Public Use
  Company Number: IT-009507513-2403ITA009394

PATIENT
  Age: 34 Year
  Sex: Female

DRUGS (1)
  1. RECARBRIO [Suspect]
     Active Substance: CILASTATIN\IMIPENEM ANHYDROUS\RELEBACTAM ANHYDROUS
     Indication: Septic shock

REACTIONS (2)
  - Death [Fatal]
  - Product use in unapproved indication [Unknown]
